FAERS Safety Report 10213832 (Version 1)
Quarter: 2014Q2

REPORT INFORMATION
  Report Type: Spontaneous
  Country: US (occurrence: None)
  Receive Date: 20140602
  Receipt Date: 20140602
  Transmission Date: 20141212
  Serious: Yes (Hospitalization, Disabling)
  Sender: FDA-Public Use
  Company Number: None

PATIENT
  Age: 46 Year
  Sex: Male
  Weight: 81.65 kg

DRUGS (2)
  1. GEODON [Suspect]
     Indication: BIPOLAR DISORDER
     Dosage: 1 PILL ONCE DAILY TAKEN BY MOUTH
     Route: 048
     Dates: start: 20091005, end: 20131203
  2. PHENERGAN [Suspect]
     Indication: NAUSEA
     Dosage: 1 PILL AS NEEDED TAKEN BY MOUTH
     Route: 048
     Dates: start: 20110207, end: 20131203

REACTIONS (5)
  - Dysphemia [None]
  - Nausea [None]
  - Tardive dyskinesia [None]
  - Heart rate increased [None]
  - Blood pressure increased [None]
